FAERS Safety Report 11807869 (Version 2)
Quarter: 2015Q4

REPORT INFORMATION
  Report Type: Report from Study
  Country: US (occurrence: US)
  Receive Date: 20151207
  Receipt Date: 20151222
  Transmission Date: 20160305
  Serious: Yes (Hospitalization)
  Sender: FDA-Public Use
  Company Number: US-BAXALTA-2015BLT003022

PATIENT
  Age: 46 Year
  Sex: Female
  Weight: 60.45 kg

DRUGS (2)
  1. ARALAST NP [Suspect]
     Active Substance: .ALPHA.1-PROTEINASE INHIBITOR HUMAN
     Indication: ALPHA-1 ANTI-TRYPSIN DEFICIENCY
     Dosage: LEFT CHEST PORT, 60 MINUTES 1X A WEEK
     Route: 042
     Dates: start: 2005
  2. ARALAST NP [Suspect]
     Active Substance: .ALPHA.1-PROTEINASE INHIBITOR HUMAN
     Dosage: LEFT CHEST PORT, 60 MINUTES 1X A WEEK
     Route: 042
     Dates: start: 20151213, end: 20151213

REACTIONS (1)
  - Pneumonia [Recovering/Resolving]

NARRATIVE: CASE EVENT DATE: 20151119
